FAERS Safety Report 6278534-7 (Version None)
Quarter: 2009Q3

REPORT INFORMATION
  Report Type: 
  Country: None (occurrence: None)
  Receive Date: 20090722
  Receipt Date: 20080710
  Transmission Date: 20100115
  Serious: No
  Sender: FDA-Public Use
  Company Number: US-BAUSCH-2008BL003043

PATIENT
  Age: 37 Year
  Sex: Female
  Weight: 90 kg

DRUGS (2)
  1. OPCON-A [Suspect]
     Indication: EYE ALLERGY
     Route: 047
     Dates: start: 20080710
  2. TOPROL-XL [Concomitant]
     Indication: HYPERTENSION
     Route: 048

REACTIONS (2)
  - INCORRECT DOSE ADMINISTERED [None]
  - MYDRIASIS [None]
